FAERS Safety Report 24041616 (Version 1)
Quarter: 2024Q3

REPORT INFORMATION
  Report Type: Spontaneous
  Country: US (occurrence: US)
  Receive Date: 20240702
  Receipt Date: 20240702
  Transmission Date: 20241017
  Serious: No
  Sender: SAREPTA THERAPEUTICS
  Company Number: US-SAREPTA THERAPEUTICS INC.-SRP2023-004104

PATIENT
  Sex: Male
  Weight: 42.177 kg

DRUGS (15)
  1. EXONDYS 51 [Suspect]
     Active Substance: ETEPLIRSEN
     Indication: Duchenne muscular dystrophy
     Dosage: 1300 MILLIGRAM, WEEKLY
     Route: 042
     Dates: start: 20171201, end: 20231124
  2. EXONDYS 51 [Suspect]
     Active Substance: ETEPLIRSEN
     Dosage: 1300 MILLIGRAM, WEEKLY
     Route: 042
     Dates: start: 20231204
  3. LEVALBUTEROL HYDROCHLORIDE [Concomitant]
     Active Substance: LEVALBUTEROL HYDROCHLORIDE
     Indication: Product used for unknown indication
     Dosage: 2 PUFFS, Q4H, PRN
  4. CALCIUM CARBONATE [Concomitant]
     Active Substance: CALCIUM CARBONATE
     Indication: Product used for unknown indication
     Dosage: 900 MILLIGRAM, TID
     Route: 048
  5. EMFLAZA [Concomitant]
     Active Substance: DEFLAZACORT
     Indication: Product used for unknown indication
     Dosage: 36 MILLIGRAM, QD
     Route: 048
  6. FAMOTIDINE [Concomitant]
     Active Substance: FAMOTIDINE
     Indication: Product used for unknown indication
     Dosage: 20 MILLIGRAM, QD
     Route: 048
  7. DULCOLAX (BISACODYL) [Concomitant]
     Active Substance: BISACODYL
     Indication: Product used for unknown indication
     Dosage: 10 MILLIGRAM, QD/PRN
     Route: 048
  8. MIRALAX [Concomitant]
     Active Substance: POLYETHYLENE GLYCOL 3350
     Indication: Product used for unknown indication
     Dosage: 17 MILLIGRAM, QD/PRN
     Route: 048
  9. ZOLOFT [Concomitant]
     Active Substance: SERTRALINE HYDROCHLORIDE
     Indication: Product used for unknown indication
     Dosage: 50 MILLIGRAM, QD
     Route: 048
  10. SPIRONOLACTONE [Concomitant]
     Active Substance: SPIRONOLACTONE
     Indication: Product used for unknown indication
     Dosage: 12.5 MILLIGRAM, QD
     Route: 048
  11. LISINOPRIL [Concomitant]
     Active Substance: LISINOPRIL
     Indication: Product used for unknown indication
     Dosage: 7.5 MILLIGRAM, BEDTIME
     Route: 048
  12. CHOLECALCIFEROL [Concomitant]
     Active Substance: CHOLECALCIFEROL
     Indication: Product used for unknown indication
     Dosage: 50 MICROGRAM, BID
     Route: 048
  13. ERYTHROMYCIN [Concomitant]
     Active Substance: ERYTHROMYCIN
     Indication: Product used for unknown indication
     Dosage: 0.5% OINTMENT 1 APP BOTH EYES, QID
  14. LATANOPROST [Concomitant]
     Active Substance: LATANOPROST
     Indication: Product used for unknown indication
     Dosage: 1 DROP EACH EYE TO BOTH EYES, QD
  15. MELATONIN [Concomitant]
     Active Substance: MELATONIN
     Indication: Product used for unknown indication
     Dosage: 7.5 MILLIGRAM, BEDTIME
     Route: 048

REACTIONS (1)
  - COVID-19 [Unknown]

NARRATIVE: CASE EVENT DATE: 20230101
